FAERS Safety Report 16112400 (Version 1)
Quarter: 2019Q1

REPORT INFORMATION
  Report Type: Report from Study
  Country: None (occurrence: CO)
  Receive Date: 20190325
  Receipt Date: 20190325
  Transmission Date: 20190418
  Serious: Yes (Death)
  Sender: FDA-Public Use
  Company Number: CO-ABBVIE-19S-036-2718511-00

PATIENT
  Age: 75 Year
  Sex: Male

DRUGS (1)
  1. ZEMPLAR [Suspect]
     Active Substance: PARICALCITOL
     Indication: HYPERPARATHYROIDISM SECONDARY
     Dosage: POSTDIALYSIS
     Route: 042
     Dates: start: 20180427, end: 20190214

REACTIONS (3)
  - Dyspnoea [Fatal]
  - Lung disorder [Fatal]
  - Cardio-respiratory arrest [Fatal]

NARRATIVE: CASE EVENT DATE: 20190218
